FAERS Safety Report 7363856-9 (Version None)
Quarter: 2011Q1

REPORT INFORMATION
  Report Type: 
  Country: None (occurrence: None)
  Receive Date: 20110321
  Receipt Date: 20110316
  Transmission Date: 20110831
  Serious: Yes (Other)
  Sender: FDA-Public Use
  Company Number: CL-PFIZER INC-2011035593

PATIENT
  Age: 80 Year
  Sex: Male

DRUGS (4)
  1. LYRICA [Suspect]
     Indication: GENERALISED ANXIETY DISORDER
     Dosage: 75 MG, 1X/DAY
     Route: 048
     Dates: start: 20110214, end: 20110301
  2. BLOX [Concomitant]
     Dosage: 8 MG, 1X/DAY
  3. ALPRAZOLAM [Concomitant]
     Dosage: 0.25 MG, SINGLE
     Route: 048
     Dates: start: 20110215, end: 20110215
  4. CIPRAMIL [Concomitant]
     Dosage: UNK
     Dates: start: 20100101

REACTIONS (1)
  - BLOOD PRESSURE INCREASED [None]
